FAERS Safety Report 7503400-6 (Version None)
Quarter: 2011Q2

REPORT INFORMATION
  Report Type: 
  Country: None (occurrence: None)
  Receive Date: 20110525
  Receipt Date: 20110518
  Transmission Date: 20111010
  Serious: Yes (Other)
  Sender: FDA-Public Use
  Company Number: B0716171A

PATIENT
  Sex: Female
  Weight: 31 kg

DRUGS (6)
  1. CARBOPLATIN [Suspect]
     Indication: STEM CELL TRANSPLANT
     Dosage: 400MGM2 PER DAY
     Route: 042
     Dates: start: 20010828, end: 20010831
  2. ZOVIRAX [Concomitant]
     Dosage: 150MG PER DAY
     Route: 042
     Dates: start: 20010901, end: 20011006
  3. NEO-MINOPHAGEN-C [Concomitant]
     Dosage: 40ML PER DAY
     Route: 042
     Dates: start: 20010901, end: 20010910
  4. ALKERAN [Suspect]
     Indication: STEM CELL TRANSPLANT
     Dosage: 90MGM2 PER DAY
     Route: 042
     Dates: start: 20010901, end: 20010902
  5. VEPESID [Suspect]
     Indication: STEM CELL TRANSPLANT
     Dosage: 200MGM2 PER DAY
     Route: 042
     Dates: start: 20010828, end: 20010831
  6. FUROSEMIDE [Concomitant]
     Dosage: 20ML PER DAY
     Dates: start: 20010901, end: 20010910

REACTIONS (7)
  - RENAL TUBULAR DISORDER [None]
  - BLOOD MAGNESIUM INCREASED [None]
  - BETA-N-ACETYL-D-GLUCOSAMINIDASE INCREASED [None]
  - PROTEIN URINE PRESENT [None]
  - C-REACTIVE PROTEIN INCREASED [None]
  - GLUCOSE URINE PRESENT [None]
  - PYREXIA [None]
